FAERS Safety Report 12704829 (Version 1)
Quarter: 2016Q3

REPORT INFORMATION
  Report Type: Spontaneous
  Country: CO (occurrence: CO)
  Receive Date: 20160831
  Receipt Date: 20160831
  Transmission Date: 20161109
  Serious: Yes (Hospitalization)
  Sender: FDA-Public Use
  Company Number: CO-BIOMARINAP-CO-2016-110932

PATIENT
  Age: 4 Year
  Sex: Female

DRUGS (1)
  1. ALDURAZYME [Suspect]
     Active Substance: LARONIDASE
     Indication: MUCOPOLYSACCHARIDOSIS I
     Dosage: 7 MG, QW
     Route: 041

REACTIONS (4)
  - Fall [Unknown]
  - Loss of consciousness [Not Recovered/Not Resolved]
  - Vomiting [Not Recovered/Not Resolved]
  - Head injury [Not Recovered/Not Resolved]

NARRATIVE: CASE EVENT DATE: 20160724
